FAERS Safety Report 15769130 (Version 2)
Quarter: 2019Q1

REPORT INFORMATION
  Report Type: Report from Study
  Country: US (occurrence: US)
  Receive Date: 20181228
  Receipt Date: 20190102
  Transmission Date: 20190417
  Serious: Yes (Other)
  Sender: FDA-Public Use
  Company Number: US-ROCHE-2233966

PATIENT
  Age: 49 Year
  Sex: Male

DRUGS (4)
  1. AUGMENTIN [Concomitant]
     Active Substance: AMOXICILLIN\CLAVULANATE POTASSIUM
     Indication: PROSTATE INFECTION
  2. OCREVUS [Suspect]
     Active Substance: OCRELIZUMAB
     Indication: RELAPSING-REMITTING MULTIPLE SCLEROSIS
     Route: 042
     Dates: start: 20181115
  3. OCREVUS [Suspect]
     Active Substance: OCRELIZUMAB
     Indication: MULTIPLE SCLEROSIS
     Route: 042
     Dates: start: 20181129
  4. CIPRO [Concomitant]
     Active Substance: CIPROFLOXACIN HYDROCHLORIDE
     Indication: PROSTATE INFECTION

REACTIONS (21)
  - Hyperhidrosis [Not Recovered/Not Resolved]
  - Asthenia [Not Recovered/Not Resolved]
  - Dyspnoea [Unknown]
  - Pyrexia [Unknown]
  - Urticaria [Unknown]
  - Multiple sclerosis [Unknown]
  - Respiratory distress [Recovered/Resolved]
  - Eye disorder [Recovered/Resolved]
  - Eye movement disorder [Recovered/Resolved]
  - Hypertension [Unknown]
  - Central nervous system lesion [Unknown]
  - Head discomfort [Not Recovered/Not Resolved]
  - Gait inability [Not Recovered/Not Resolved]
  - Gait disturbance [Not Recovered/Not Resolved]
  - Back pain [Not Recovered/Not Resolved]
  - Micturition disorder [Not Recovered/Not Resolved]
  - Wheezing [Unknown]
  - Cerebrovascular accident [Not Recovered/Not Resolved]
  - Rash [Recovered/Resolved]
  - Malaise [Not Recovered/Not Resolved]
  - Prostate infection [Not Recovered/Not Resolved]

NARRATIVE: CASE EVENT DATE: 20181129
